FAERS Safety Report 8832045 (Version 1)
Quarter: 2012Q4

REPORT INFORMATION
  Report Type: 
  Country: US (occurrence: US)
  Receive Date: 20121009
  Receipt Date: 20121009
  Transmission Date: 20130627
  Serious: No
  Sender: FDA-Public Use
  Company Number: US-PFIZER INC-2012247703

PATIENT
  Age: 56 Year
  Sex: Male
  Weight: 118 kg

DRUGS (3)
  1. DEPO-MEDROL [Suspect]
     Indication: HORMONE REPLACEMENT THERAPY
     Dosage: 40 mg, as needed
     Dates: start: 20120901
  2. CORTEF [Suspect]
     Indication: HORMONE REPLACEMENT THERAPY
     Dosage: 30 mg, daily
     Route: 048
     Dates: start: 2005
  3. AXIRON [Concomitant]
     Indication: HORMONE REPLACEMENT THERAPY
     Dosage: 5 mg, daily
     Dates: start: 2011

REACTIONS (4)
  - Nausea [Not Recovered/Not Resolved]
  - Vomiting [Not Recovered/Not Resolved]
  - Malaise [Not Recovered/Not Resolved]
  - Drug intolerance [Unknown]
